FAERS Safety Report 9546953 (Version 2)
Quarter: 2014Q1

REPORT INFORMATION
  Report Type: Spontaneous
  Country: US (occurrence: None)
  Receive Date: 20130606
  Receipt Date: 20130906
  Transmission Date: 20141002
  Serious: Yes (Other)
  Sender: FDA-Public Use
  Company Number: 163-POMAL-13045017

PATIENT
  Age: 73 Year
  Sex: Female

DRUGS (8)
  1. POMALYST [Suspect]
     Indication: PLASMA CELL MYELOMA
     Route: 048
     Dates: start: 20130326, end: 20130422
  2. GLIPIZIDE [Concomitant]
  3. BIAXIN (CLARITHROMYCIN) [Concomitant]
  4. REQUIP (ROPINIROLE HYDROCHLORIDE) [Concomitant]
  5. LEXAPRO (ESCITALOPRAM OXALATE) [Concomitant]
  6. OMEPRAZOLE [Concomitant]
  7. ACYCLOVIR (ACICLOVIR) (ACICLOVIR) [Concomitant]
  8. PHENOBARBITAL [Concomitant]

REACTIONS (4)
  - Full blood count decreased [None]
  - Platelet count decreased [None]
  - White blood cell count decreased [None]
  - Neutrophil count decreased [None]
